FAERS Safety Report 4674734-8 (Version None)
Quarter: 2005Q2

REPORT INFORMATION
  Report Type: 
  Country: None (occurrence: None)
  Receive Date: 20050526
  Receipt Date: 20050419
  Transmission Date: 20051028
  Serious: Yes (Hospitalization)
  Sender: FDA-Public Use
  Company Number: PHBS2005JP05604

PATIENT
  Age: 72 Year
  Sex: Female
  Weight: 59 kg

DRUGS (6)
  1. KLARICID [Suspect]
     Indication: BRONCHITIS
     Dosage: 200 MG, BID
     Route: 048
     Dates: start: 20050326
  2. PREDNISOLONE [Suspect]
     Indication: BRONCHITIS
     Dosage: 10 MG, BID
     Route: 048
     Dates: start: 20050326
  3. COLDRIN [Suspect]
     Indication: BRONCHITIS
     Dosage: 25 MG, TID
     Route: 048
     Dates: start: 20050326
  4. ASTHMOLYSIN D [Suspect]
     Indication: BRONCHITIS
     Dosage: 1 DF, QD
     Route: 048
     Dates: start: 20050326
  5. MUCOSOLVAN [Suspect]
     Indication: BRONCHITIS
     Dosage: 45 MG, QD
     Route: 048
     Dates: start: 20050326
  6. DIOVAN [Suspect]
     Indication: HYPERTENSION
     Dosage: 80 MG, QD
     Route: 048
     Dates: start: 20050323

REACTIONS (1)
  - CEREBRAL HAEMORRHAGE [None]
